FAERS Safety Report 8117191-1 (Version None)
Quarter: 2012Q1

REPORT INFORMATION
  Report Type: 
  Country: None (occurrence: None)
  Receive Date: 20120206
  Receipt Date: 20120203
  Transmission Date: 20120608
  Serious: Yes (Hospitalization)
  Sender: FDA-Public Use
  Company Number: US-VERTEX PHARMACEUTICALS INC.-AE-2012-001586

PATIENT
  Sex: Female

DRUGS (18)
  1. INTERFERON [Concomitant]
     Indication: HEPATITIS C
     Dates: start: 20110912, end: 20111101
  2. RIBAVIRIN [Concomitant]
     Indication: HEPATITIS C
     Dates: start: 20110912, end: 20111101
  3. FUROSEMIDE [Concomitant]
  4. POTASSIUM CHLORIDE [Concomitant]
  5. FLUOXETINE [Concomitant]
  6. NYSTATIN [Concomitant]
  7. SPIRONOLACTONE [Concomitant]
  8. ONDANSETRON [Concomitant]
  9. HYDROXYZINE [Concomitant]
  10. INCIVEK [Suspect]
     Indication: HEPATITIS C
     Route: 048
     Dates: start: 20110912, end: 20111101
  11. TRIAMCINOLONE [Concomitant]
  12. PHYTONADIONE [Concomitant]
  13. XIFAXAN [Concomitant]
  14. MELATONIN [Concomitant]
  15. MAGIC MOUTHWASH [Concomitant]
  16. DIPHENHYDRAMINE HCL [Concomitant]
  17. AMITRIPTYLINE HCL [Concomitant]
  18. GABAPENTIN [Concomitant]

REACTIONS (3)
  - ANAEMIA [None]
  - NEUROPATHY PERIPHERAL [None]
  - HEPATIC CIRRHOSIS [None]
